FAERS Safety Report 8774594 (Version 2)
Quarter: 2012Q4

REPORT INFORMATION
  Report Type: 
  Country: US (occurrence: US)
  Receive Date: 20120907
  Receipt Date: 20120924
  Transmission Date: 20130627
  Serious: Yes (Death, Life-Threatening, Other)
  Sender: FDA-Public Use
  Company Number: US-BIOGENIDEC-2012BI034707

PATIENT
  Age: 53 Year
  Sex: Male
  Weight: 105 kg

DRUGS (25)
  1. TYSABRI [Suspect]
     Indication: MULTIPLE SCLEROSIS
     Route: 042
     Dates: start: 20070327, end: 20100903
  2. TYSABRI [Suspect]
     Indication: MULTIPLE SCLEROSIS
     Route: 042
     Dates: start: 20110111, end: 20110902
  3. TYSABRI [Suspect]
     Indication: MULTIPLE SCLEROSIS
     Route: 042
     Dates: start: 20120227, end: 20120726
  4. MODAFINAL [Concomitant]
     Route: 048
     Dates: start: 20120629
  5. TEMAZEPAM [Concomitant]
     Route: 048
     Dates: start: 20120516
  6. VIAGRA [Concomitant]
     Indication: ERECTILE DYSFUNCTION
     Route: 048
     Dates: start: 20120423
  7. TIZANIDINE HCL [Concomitant]
     Route: 048
     Dates: start: 20120423
  8. TIZANIDINE HCL [Concomitant]
     Route: 048
  9. CALCIUM [Concomitant]
     Route: 048
  10. VITAMIN D [Concomitant]
     Route: 048
  11. BUPROPION SR [Concomitant]
     Route: 048
  12. LORAZEPAM [Concomitant]
     Indication: ANXIETY
     Route: 048
     Dates: start: 20120607
  13. METOPROLOL TARTRATE [Concomitant]
     Route: 048
     Dates: start: 20120417
  14. TAMSULOSIN [Concomitant]
     Route: 048
     Dates: start: 20120417
  15. CYANOCOBALAMIN [Concomitant]
     Route: 048
  16. OXYBUTYNIN [Concomitant]
     Route: 048
     Dates: start: 20120112
  17. POTASSIUM CHLORIDE [Concomitant]
     Route: 048
  18. PRAVASTATIN [Concomitant]
     Route: 048
  19. MULTIVITAMIN [Concomitant]
  20. CHOLECALCIFEROL [Concomitant]
     Route: 048
  21. COENZYME Q10 [Concomitant]
     Route: 048
  22. B-COMPLEX [Concomitant]
  23. HYDROCHOROTHIAZIDE [Concomitant]
     Route: 048
  24. ASPIRIN [Concomitant]
     Route: 048
  25. CETIRIZINE [Concomitant]
     Route: 048

REACTIONS (4)
  - Arteriosclerosis coronary artery [Fatal]
  - Hypertensive heart disease [Unknown]
  - Cellulitis [Unknown]
  - Myocardial infarction [Fatal]
